FAERS Safety Report 25831050 (Version 5)
Quarter: 2025Q4

REPORT INFORMATION
  Report Type: Report from Study
  Country: EU (occurrence: EU)
  Receive Date: 20250922
  Receipt Date: 20251208
  Transmission Date: 20260117
  Serious: Yes (Hospitalization)
  Sender: ABBVIE
  Company Number: EU-ABBVIE-6465370

PATIENT
  Age: 71 Year
  Sex: Female

DRUGS (4)
  1. CARBIDOPA\LEVODOPA [Suspect]
     Active Substance: CARBIDOPA\LEVODOPA
     Indication: Parkinson^s disease
     Dosage: MD: 6.0 ML; CRD: 3.4 ML/H ED: 1.2 ML
     Route: 050
     Dates: start: 20231006
  2. CARBIDOPA\LEVODOPA [Suspect]
     Active Substance: CARBIDOPA\LEVODOPA
     Dosage: MD: 6.0 ML; CRD: 3.4 ML/H ED: 1.2 ML?END DATE- OCT 2023.
     Route: 050
     Dates: start: 20231002
  3. CARBIDOPA\LEVODOPA [Suspect]
     Active Substance: CARBIDOPA\LEVODOPA
     Dosage: MD: 4.0 ML; CR: 1.2 ML/H; ED: 1.0 ML
     Route: 050
  4. CARBIDOPA\LEVODOPA [Suspect]
     Active Substance: CARBIDOPA\LEVODOPA
     Dosage: MD 8.0 ML; CRT 3.2 ML/H; CRN 3.5 ML/H; ED 1.2 ML
     Route: 050

REACTIONS (15)
  - Feeding disorder [Not Recovered/Not Resolved]
  - Abdominal pain [Recovered/Resolved]
  - Hypokinesia [Not Recovered/Not Resolved]
  - Device kink [Recovered/Resolved]
  - On and off phenomenon [Not Recovered/Not Resolved]
  - Coronavirus infection [Not Recovered/Not Resolved]
  - Device issue [Not Recovered/Not Resolved]
  - Weight decreased [Not Recovered/Not Resolved]
  - Freezing phenomenon [Not Recovered/Not Resolved]
  - Cardiovascular disorder [Not Recovered/Not Resolved]
  - Stomach mass [Recovered/Resolved]
  - Device dislocation [Recovered/Resolved]
  - Device issue [Unknown]
  - Abdominal pain upper [Not Recovered/Not Resolved]
  - Nausea [Not Recovered/Not Resolved]

NARRATIVE: CASE EVENT DATE: 20250901
